FAERS Safety Report 25703928 (Version 3)
Quarter: 2025Q3

REPORT INFORMATION
  Report Type: Report from Study
  Country: US (occurrence: US)
  Receive Date: 20250820
  Receipt Date: 20250930
  Transmission Date: 20251020
  Serious: Yes (Other)
  Sender: UCB
  Company Number: US-UCBSA-2025051113

PATIENT
  Age: 66 Year
  Sex: Male

DRUGS (5)
  1. ROZANOLIXIZUMAB [Suspect]
     Active Substance: ROZANOLIXIZUMAB
     Indication: Myasthenia gravis
     Dosage: UNK, WEEKLY (QW) FOR 6 WEEKS
     Route: 058
     Dates: start: 202402
  2. MESTINON [Concomitant]
     Active Substance: PYRIDOSTIGMINE BROMIDE
     Indication: Product used for unknown indication
  3. PYRIDOSTIGMINE [Concomitant]
     Active Substance: PYRIDOSTIGMINE
     Indication: Myasthenia gravis
     Dosage: 180 MILLIGRAM, 2X/DAY (BID)
     Route: 048
     Dates: start: 202402
  4. PYRIDOSTIGMINE [Concomitant]
     Active Substance: PYRIDOSTIGMINE
     Indication: Myasthenia gravis
     Dosage: 90 MILLIGRAM, 3X/DAY (TID)
     Route: 048
  5. LOSARTAN [Concomitant]
     Active Substance: LOSARTAN
     Indication: Hypertension
     Dosage: 100/25 MILLIGRAM, ONCE DAILY (QD)
     Route: 048

REACTIONS (4)
  - Myasthenia gravis [Not Recovered/Not Resolved]
  - Weight decreased [Not Recovered/Not Resolved]
  - Fall [Not Recovered/Not Resolved]
  - Therapeutic response shortened [Unknown]

NARRATIVE: CASE EVENT DATE: 20240701
